FAERS Safety Report 15909668 (Version 1)
Quarter: 2019Q1

REPORT INFORMATION
  Report Type: Spontaneous
  Country: US (occurrence: US)
  Receive Date: 20190204
  Receipt Date: 20190204
  Transmission Date: 20190417
  Serious: Yes (Other)
  Sender: FDA-Public Use
  Company Number: US-ABBVIE-18K-163-2231782-00

PATIENT
  Sex: Female

DRUGS (12)
  1. HUMIRA [Suspect]
     Active Substance: ADALIMUMAB
     Indication: PRODUCT USED FOR UNKNOWN INDICATION
     Route: 058
  2. XELJANZ [Suspect]
     Active Substance: TOFACITINIB CITRATE
     Indication: RHEUMATOID ARTHRITIS
     Route: 048
  3. METHOTREXATE. [Concomitant]
     Active Substance: METHOTREXATE
     Indication: RHEUMATOID ARTHRITIS
     Dosage: 2 MG TABLET, 6 TABLETS 1 DAY A WEEK BY MOUTH
     Route: 048
  4. CLONAZEPAM. [Concomitant]
     Active Substance: CLONAZEPAM
     Indication: TREMOR
  5. GABAPENTIN. [Concomitant]
     Active Substance: GABAPENTIN
     Indication: NEUROPATHY PERIPHERAL
  6. TOPIRAMATE. [Concomitant]
     Active Substance: TOPIRAMATE
     Indication: MIGRAINE
     Dosage: 1-2 AT NIGHT
  7. MORPHINE [Concomitant]
     Active Substance: MORPHINE
     Indication: PAIN
     Dosage: 1-3 TIMES A DAY ?USUALLY TAKES IT TWICE A DAY
  8. METHOCARBAMOL. [Concomitant]
     Active Substance: METHOCARBAMOL
     Indication: MUSCLE RELAXANT THERAPY
  9. OXYCODONE [Concomitant]
     Active Substance: OXYCODONE
     Indication: PAIN
     Dosage: ONLY TAKES IF NOT TAKING MORPHINE, TWICE A DAY AS NEEDED
  10. PREDNISONE. [Concomitant]
     Active Substance: PREDNISONE
     Indication: INFLAMMATION
     Route: 048
  11. TEMAZEPAM. [Suspect]
     Active Substance: TEMAZEPAM
     Indication: SLEEP DISORDER THERAPY
     Dosage: ONCE AT NIGHT
     Route: 065
  12. FOLIC ACID. [Concomitant]
     Active Substance: FOLIC ACID
     Indication: VITAMIN SUPPLEMENTATION
     Dosage: GOES WITH METHOTREXATE

REACTIONS (17)
  - Finger deformity [Unknown]
  - Head injury [Unknown]
  - Nerve root compression [Unknown]
  - Drug effect variable [Unknown]
  - Insomnia [Unknown]
  - Fall [Unknown]
  - Joint swelling [Unknown]
  - Joint contracture [Unknown]
  - Cerebrovascular accident [Unknown]
  - Drug ineffective [Unknown]
  - Balance disorder [Unknown]
  - Neuropathy peripheral [Unknown]
  - Rheumatoid arthritis [Unknown]
  - Wrist fracture [Unknown]
  - Osteopenia [Unknown]
  - Foot deformity [Unknown]
  - Limb injury [Unknown]
